FAERS Safety Report 15002475 (Version 1)
Quarter: 2018Q2

REPORT INFORMATION
  Report Type: Spontaneous
  Country: HU (occurrence: HU)
  Receive Date: 20180612
  Receipt Date: 20180612
  Transmission Date: 20180711
  Serious: Yes (Other)
  Sender: FDA-Public Use
  Company Number: PHHY2018HU014964

PATIENT
  Age: 28 Year
  Sex: Female

DRUGS (4)
  1. METHYLPREDNISOLONE. [Suspect]
     Active Substance: METHYLPREDNISOLONE
     Indication: HELLP SYNDROME
     Dosage: 750 MG, QD
     Route: 042
  2. METHYLDOPA. [Suspect]
     Active Substance: METHYLDOPA
     Indication: HELLP SYNDROME
     Dosage: 2000 MG, QD
     Route: 048
  3. NIFEDIPINE. [Suspect]
     Active Substance: NIFEDIPINE
     Indication: HELLP SYNDROME
     Dosage: 80 MG, QD
     Route: 048
  4. FUROSEMIDE. [Suspect]
     Active Substance: FUROSEMIDE
     Indication: HELLP SYNDROME
     Dosage: 60 MG, QD
     Route: 042

REACTIONS (3)
  - Acute respiratory distress syndrome [Recovering/Resolving]
  - HELLP syndrome [Recovering/Resolving]
  - Disease progression [Recovering/Resolving]
